APPROVED DRUG PRODUCT: NEREUS
Active Ingredient: TRADIPITANT
Strength: 85MG
Dosage Form/Route: CAPSULE;ORAL
Application: N220152 | Product #001
Applicant: VANDA PHARMACEUTICALS INC
Approved: Dec 30, 2025 | RLD: Yes | RS: Yes | Type: RX

PATENTS:
Patent 12318375 | Expires: Aug 9, 2036
Patent 11324735 | Expires: Mar 4, 2036
Patent 10821099 | Expires: Mar 4, 2036
Patent 10772880 | Expires: Mar 4, 2036

EXCLUSIVITY:
Code: NCE | Date: Dec 30, 2030